FAERS Safety Report 4883980-X (Version None)
Quarter: 2006Q1

REPORT INFORMATION
  Report Type: 
  Country: None (occurrence: None)
  Receive Date: 20060117
  Receipt Date: 20060109
  Transmission Date: 20060701
  Serious: Yes (Other)
  Sender: FDA-Public Use
  Company Number: CHPA2006US00771

PATIENT
  Age: 53 Year
  Sex: Female
  Weight: 77.1 kg

DRUGS (3)
  1. PRIVATE LABEL STEP 1 21MG ACCT (NCH)(NICOTINE)TRANS-THERAPEUTIC SYSTEM [Suspect]
     Indication: SMOKING CESSATION THERAPY
     Dosage: 21 MG, QD, TRANSDERMAL
     Route: 062
  2. CELEXA [Concomitant]
  3. VITAMINS WITH MINERALS [Concomitant]

REACTIONS (4)
  - NEOPLASM MALIGNANT [None]
  - NIGHTMARE [None]
  - SKIN CANCER [None]
  - TREATMENT NONCOMPLIANCE [None]
